FAERS Safety Report 4426979-X (Version None)
Quarter: 2004Q3

REPORT INFORMATION
  Report Type: 
  Country: None (occurrence: None)
  Receive Date: 20040726
  Receipt Date: 20040420
  Transmission Date: 20050211
  Serious: No
  Sender: FDA-Public Use
  Company Number: USA040465420

PATIENT
  Age: 86 Year
  Sex: Male

DRUGS (4)
  1. FORTEO [Suspect]
     Indication: OSTEOPOROSIS
     Dates: start: 20040301
  2. MULTIVITAMIN [Concomitant]
  3. MINERALS NOS [Concomitant]
  4. CALCIUM [Concomitant]

REACTIONS (1)
  - EPISTAXIS [None]
